FAERS Safety Report 7206818-4 (Version None)
Quarter: 2011Q1

REPORT INFORMATION
  Report Type: 
  Country: None (occurrence: None)
  Receive Date: 20110103
  Receipt Date: 20101229
  Transmission Date: 20110831
  Serious: Yes (Death, Hospitalization)
  Sender: FDA-Public Use
  Company Number: FR-SANOFI-AVENTIS-2010SA078349

PATIENT
  Age: 73 Year
  Sex: Male

DRUGS (6)
  1. CAPECITABINE [Suspect]
     Route: 048
     Dates: start: 20101123
  2. BEVACIZUMAB [Suspect]
     Route: 042
     Dates: start: 20101123, end: 20101123
  3. OXALIPLATIN [Suspect]
     Route: 042
     Dates: start: 20101123, end: 20101123
  4. FLUOXETINE [Concomitant]
  5. SIMVASTATIN [Concomitant]
  6. ACEBUTOLOL [Concomitant]

REACTIONS (1)
  - RENAL FAILURE [None]
